FAERS Safety Report 9870158 (Version 1)
Quarter: 2014Q1

REPORT INFORMATION
  Report Type: Spontaneous
  Country: FR (occurrence: None)
  Receive Date: 20140131
  Receipt Date: 20140131
  Transmission Date: 20141002
  Serious: Yes (Other)
  Sender: FDA-Public Use
  Company Number: FK201400255

PATIENT
  Sex: 0

DRUGS (1)
  1. INTRALIPID [Suspect]
     Indication: PARENTERAL NUTRITION
     Route: 041

REACTIONS (4)
  - Medication error [None]
  - Incorrect drug administration rate [None]
  - Device malfunction [None]
  - Hypertriglyceridaemia [None]
